FAERS Safety Report 5084044-5 (Version None)
Quarter: 2006Q3

REPORT INFORMATION
  Report Type: 
  Country: None (occurrence: None)
  Receive Date: 20060819
  Receipt Date: 20040513
  Transmission Date: 20061208
  Serious: Yes (Death)
  Sender: FDA-Public Use
  Company Number: NL-BOEHRINGER INGELHEIM PHARMACEUTICALS, INC.-2004-NL-00064NL

PATIENT
  Age: 90 Year
  Sex: Female

DRUGS (7)
  1. PERSANTIN RETARD 200 [Suspect]
     Route: 048
  2. ACENOCOUMAROL [Concomitant]
     Dosage: DOSING ACCORDING TO THROMBOSIS SERVICES
     Route: 048
  3. SELOKEEN [Concomitant]
     Route: 048
  4. COZAAR [Concomitant]
     Route: 048
  5. FUROSEMIDE [Concomitant]
     Route: 048
  6. ISOSORBIDE MONONITRATE RETARD [Concomitant]
     Route: 048
  7. FERROFUMARAT [Concomitant]
     Route: 048

REACTIONS (2)
  - PHARMACEUTICAL PRODUCT COMPLAINT [None]
  - SUDDEN DEATH [None]
